FAERS Safety Report 12802401 (Version 1)
Quarter: 2016Q4

REPORT INFORMATION
  Report Type: Spontaneous
  Country: US (occurrence: US)
  Receive Date: 20161001
  Receipt Date: 20161001
  Transmission Date: 20170207
  Serious: Yes (Other)
  Sender: FDA-Public Use
  Company Number: None

PATIENT
  Age: 19 Year
  Sex: Female
  Weight: 81.65 kg

DRUGS (1)
  1. PLAN B [Suspect]
     Active Substance: LEVONORGESTREL

REACTIONS (3)
  - Vulvovaginal pruritus [None]
  - Vulvovaginal swelling [None]
  - Vulvovaginal burning sensation [None]

NARRATIVE: CASE EVENT DATE: 20160925
